FAERS Safety Report 23995827 (Version 1)
Quarter: 2024Q2

REPORT INFORMATION
  Report Type: Spontaneous
  Country: FR (occurrence: FR)
  Receive Date: 20240620
  Receipt Date: 20240620
  Transmission Date: 20240716
  Serious: Yes (Death)
  Sender: FDA-Public Use
  Company Number: None

PATIENT
  Age: 67 Year
  Sex: Female
  Weight: 98 kg

DRUGS (2)
  1. METFORMIN [Suspect]
     Active Substance: METFORMIN HYDROCHLORIDE
     Indication: Type 2 diabetes mellitus
     Dosage: METFORMIN HYDROCHLORIDE
     Route: 048
     Dates: start: 20240416, end: 20240417
  2. KETOPROFEN [Concomitant]
     Active Substance: KETOPROFEN
     Indication: Surgery
     Route: 048
     Dates: start: 20240415, end: 20240416

REACTIONS (1)
  - Lactic acidosis [Fatal]

NARRATIVE: CASE EVENT DATE: 20240418
